FAERS Safety Report 16405592 (Version 3)
Quarter: 2019Q2

REPORT INFORMATION
  Report Type: Spontaneous
  Country: US (occurrence: US)
  Receive Date: 20190607
  Receipt Date: 20190618
  Transmission Date: 20190711
  Serious: Yes (Other)
  Sender: FDA-Public Use
  Company Number: US-PFIZER INC-2019231971

PATIENT
  Age: 46 Year
  Sex: Female

DRUGS (1)
  1. SPIRONOLACTONE. [Suspect]
     Active Substance: SPIRONOLACTONE
     Indication: ACNE
     Dosage: UNK

REACTIONS (5)
  - Vestibulitis [Recovered/Resolved]
  - Off label use [Unknown]
  - Disturbance in sexual arousal [Recovering/Resolving]
  - Dyspareunia [Recovering/Resolving]
  - Product use in unapproved indication [Unknown]
